FAERS Safety Report 9234614 (Version 2)
Quarter: 2013Q3

REPORT INFORMATION
  Report Type: Spontaneous
  Country: US (occurrence: US)
  Receive Date: 20130416
  Receipt Date: 20130719
  Transmission Date: 20140515
  Serious: No
  Sender: FDA-Public Use
  Company Number: US-MYLANLABS-2013S1005739

PATIENT
  Age: 68 Year
  Sex: Female
  Weight: 74.84 kg

DRUGS (5)
  1. VALSARTAN AND HYDROCHLOROTHIAZIDE TABLETS [Suspect]
     Indication: BLOOD PRESSURE INCREASED
     Route: 048
     Dates: start: 20130301, end: 2013
  2. TEKTURNA [Concomitant]
     Indication: BLOOD PRESSURE INCREASED
     Route: 048
  3. SYNTHROID [Concomitant]
  4. BACLOFEN [Concomitant]
  5. JUICE PLUS [Concomitant]

REACTIONS (4)
  - Drug ineffective [Recovered/Resolved]
  - Hypertension [Recovered/Resolved]
  - Malaise [Recovered/Resolved]
  - Tinnitus [Recovered/Resolved]
